FAERS Safety Report 6265413-4 (Version None)
Quarter: 2009Q3

REPORT INFORMATION
  Report Type: 
  Country: None (occurrence: None)
  Receive Date: 20090713
  Receipt Date: 20090708
  Transmission Date: 20100115
  Serious: Yes (Life-Threatening)
  Sender: FDA-Public Use
  Company Number: FR-ASTRAZENECA-2009SE04311

PATIENT
  Age: 23954 Day
  Sex: Female

DRUGS (6)
  1. NAROPIN [Suspect]
     Indication: LOCAL ANAESTHESIA
     Route: 053
     Dates: start: 20081113, end: 20081113
  2. DIPRIVAN [Suspect]
     Indication: INDUCTION OF ANAESTHESIA
     Route: 042
     Dates: start: 20081113, end: 20081113
  3. SUFENTA PRESERVATIVE FREE [Suspect]
     Indication: INDUCTION OF ANAESTHESIA
     Route: 042
     Dates: start: 20081113, end: 20081113
  4. NIMBEX [Suspect]
     Indication: INDUCTION OF ANAESTHESIA
     Route: 042
     Dates: start: 20081113, end: 20081113
  5. KETALAR [Suspect]
     Indication: INDUCTION OF ANAESTHESIA
     Route: 042
     Dates: start: 20081113, end: 20081113
  6. KEFANDOL [Suspect]
     Indication: ANTIBIOTIC PROPHYLAXIS
     Route: 042
     Dates: start: 20081113, end: 20081113

REACTIONS (3)
  - ANAPHYLACTIC SHOCK [None]
  - BRONCHOSPASM [None]
  - HYPOTENSION [None]
